FAERS Safety Report 5808160-2 (Version None)
Quarter: 2008Q3

REPORT INFORMATION
  Report Type: 
  Country: None (occurrence: None)
  Receive Date: 20080709
  Receipt Date: 20080701
  Transmission Date: 20090109
  Serious: Yes (Hospitalization)
  Sender: FDA-Public Use
  Company Number: 163-21880-08050164

PATIENT
  Age: 71 Year
  Sex: Male

DRUGS (2)
  1. REVLIMID [Suspect]
     Indication: MULTIPLE MYELOMA
     Dosage: 25 MG, X 21 DAYS Q 28 DAYS, ORAL; 25 MG, X 21 DAYS Q 28 DAYS, ORAL
     Route: 048
     Dates: start: 20080121, end: 20080327
  2. REVLIMID [Suspect]
     Indication: MULTIPLE MYELOMA
     Dosage: 25 MG, X 21 DAYS Q 28 DAYS, ORAL; 25 MG, X 21 DAYS Q 28 DAYS, ORAL
     Route: 048
     Dates: start: 20080513

REACTIONS (1)
  - CHOLECYSTITIS INFECTIVE [None]
